FAERS Safety Report 8126466-1 (Version None)
Quarter: 2012Q1

REPORT INFORMATION
  Report Type: 
  Country: None (occurrence: None)
  Receive Date: 20120209
  Receipt Date: 20111109
  Transmission Date: 20120608
  Serious: Yes (Hospitalization, Other)
  Sender: FDA-Public Use
  Company Number: PHHY2011US18086

PATIENT
  Sex: Female
  Weight: 55 kg

DRUGS (15)
  1. BENADRYL [Concomitant]
     Dosage: 50 MG, PRN
     Route: 048
     Dates: start: 20110127
  2. DIPHENHYDRAMINE HCL [Concomitant]
     Dosage: UNK
     Route: 048
     Dates: start: 20110127
  3. EXJADE [Suspect]
     Indication: SICKLE CELL ANAEMIA
     Dosage: 1000 MG, DAILY
     Route: 048
     Dates: start: 20110121
  4. EXJADE [Suspect]
     Indication: IRON OVERLOAD
  5. OXYCONTIN [Concomitant]
     Dosage: 160 MG,
     Route: 048
     Dates: start: 20110127
  6. FOLIC ACID [Concomitant]
     Dosage: UNK
     Route: 048
     Dates: start: 20110127
  7. ELAVIL [Concomitant]
  8. TOPAMAX [Concomitant]
     Dosage: UNK
     Route: 048
     Dates: start: 20110303
  9. ASPIRIN [Concomitant]
     Dosage: UNK
     Route: 048
     Dates: start: 20110303
  10. ONDANSETRON HCL [Concomitant]
     Dosage: UNK
     Route: 048
     Dates: start: 20110127
  11. KEPPRA [Concomitant]
     Dosage: 1500 MG, DAILY
     Route: 048
     Dates: start: 20110127
  12. DILAUDID [Concomitant]
     Dosage: UNK
     Route: 048
     Dates: start: 20110127
  13. FLEXERIL [Concomitant]
     Dosage: UNK
     Route: 048
     Dates: start: 20110303
  14. CARDIZEM LA [Concomitant]
     Dosage: UNK
     Route: 048
     Dates: start: 20110127
  15. AMITRIPTYLINE HCL [Concomitant]
     Dosage: 10 MG, DAILY
     Route: 048
     Dates: start: 20110303

REACTIONS (8)
  - ABDOMINAL PAIN UPPER [None]
  - DIARRHOEA [None]
  - PAIN [None]
  - VOMITING [None]
  - PAIN IN EXTREMITY [None]
  - NAUSEA [None]
  - CONVULSION [None]
  - SICKLE CELL ANAEMIA WITH CRISIS [None]
